FAERS Safety Report 21936449 (Version 1)
Quarter: 2023Q1

REPORT INFORMATION
  Report Type: Report from Study
  Country: US (occurrence: US)
  Receive Date: 20230201
  Receipt Date: 20230201
  Transmission Date: 20230417
  Serious: No
  Sender: FDA-Public Use
  Company Number: US-INCYTE CORPORATION-2020IN012006

PATIENT

DRUGS (3)
  1. PEMIGATINIB [Suspect]
     Active Substance: PEMIGATINIB
     Indication: Cholangiocarcinoma
     Dosage: 13.5 MILLIGRAM, QD
     Route: 048
     Dates: start: 20201206
  2. PEMIGATINIB [Suspect]
     Active Substance: PEMIGATINIB
     Dosage: 13.5MG QAM FOR 14 DAYS THEN 7 DAYS OFF
     Route: 048
     Dates: start: 20201213
  3. PEMIGATINIB [Suspect]
     Active Substance: PEMIGATINIB
     Dosage: 13.5 MILLIGRAM
     Route: 048
     Dates: start: 20201124

REACTIONS (6)
  - Taste disorder [Unknown]
  - Sinus disorder [Unknown]
  - Visual impairment [Unknown]
  - Fatigue [Unknown]
  - Alopecia [Unknown]
  - Dry mouth [Unknown]

NARRATIVE: CASE EVENT DATE: 20210318
